FAERS Safety Report 6753848-2 (Version None)
Quarter: 2010Q2

REPORT INFORMATION
  Report Type: 
  Country: None (occurrence: None)
  Receive Date: 20100603
  Receipt Date: 20100520
  Transmission Date: 20101027
  Serious: Yes (Other)
  Sender: FDA-Public Use
  Company Number: CA-ELI_LILLY_AND_COMPANY-CA201005005709

PATIENT
  Age: 25 Year
  Sex: Female

DRUGS (3)
  1. ZYPREXA [Suspect]
     Dosage: 10 MG, UNKNOWN
  2. ZELDOX [Concomitant]
  3. EPIVAL [Concomitant]

REACTIONS (1)
  - RENAL IMPAIRMENT [None]
